FAERS Safety Report 26198064 (Version 1)
Quarter: 2025Q4

REPORT INFORMATION
  Report Type: Spontaneous
  Country: CN (occurrence: CN)
  Receive Date: 20251224
  Receipt Date: 20251224
  Transmission Date: 20260117
  Serious: Yes (Other)
  Sender: EISAI
  Company Number: CN-Eisai-EC-2025-202169

PATIENT
  Age: 80 Year
  Sex: Male
  Weight: 70 kg

DRUGS (3)
  1. LENVATINIB [Suspect]
     Active Substance: LENVATINIB
     Indication: Small intestine carcinoma
     Dosage: DOSE AND FREQUENCY UNKNOWN
     Route: 048
  2. ENVAFOLIMAB [Suspect]
     Active Substance: ENVAFOLIMAB
     Indication: Small intestine carcinoma
     Dosage: DOSE AND FREQUENCY UNKNOWN
  3. SACITUZUMAB TIRUMOTECAN [Suspect]
     Active Substance: SACITUZUMAB TIRUMOTECAN
     Indication: Small intestine carcinoma
     Dosage: 4 CYCLES
     Route: 042
     Dates: start: 20250918, end: 20251126

REACTIONS (2)
  - Laryngopharyngitis [Recovering/Resolving]
  - Off label use [Recovering/Resolving]

NARRATIVE: CASE EVENT DATE: 20251021
